FAERS Safety Report 12793675 (Version 1)
Quarter: 2016Q3

REPORT INFORMATION
  Report Type: Spontaneous
  Country: US (occurrence: US)
  Receive Date: 20160929
  Receipt Date: 20160929
  Transmission Date: 20161109
  Serious: No
  Sender: FDA-Public Use
  Company Number: US-JNJFOC-20160913265

PATIENT
  Sex: Female
  Weight: 68.95 kg

DRUGS (3)
  1. DEPAKOTE [Concomitant]
     Active Substance: DIVALPROEX SODIUM
  2. INVEGA SUSTENNA [Suspect]
     Active Substance: PALIPERIDONE PALMITATE
     Indication: SCHIZOPHRENIA
     Route: 030
     Dates: start: 20160901
  3. INVEGA SUSTENNA [Suspect]
     Active Substance: PALIPERIDONE PALMITATE
     Indication: SCHIZOPHRENIA
     Route: 030
     Dates: start: 20160912

REACTIONS (3)
  - Inappropriate schedule of drug administration [Unknown]
  - Off label use [Unknown]
  - Medication error [Unknown]

NARRATIVE: CASE EVENT DATE: 20160912
